FAERS Safety Report 7358350 (Version 3)
Quarter: 2012Q4

REPORT INFORMATION
  Report Type: 
  Country: US (occurrence: US)
  Receive Date: 20100419
  Receipt Date: 20121226
  Transmission Date: 20130627
  Serious: Yes (Hospitalization)
  Sender: FDA-Public Use
  Company Number: US-BAYER-201019499NA

PATIENT
  Age: 37 Year
  Sex: Female
  Weight: 58.96 kg

DRUGS (15)
  1. YASMIN [Suspect]
     Indication: PRODUCT USED FOR UNKNOWN INDICATION
     Dosage: UNK
     Route: 048
     Dates: start: 20060709, end: 20080424
  2. YAZ [Suspect]
  3. TOPAMAX [Concomitant]
     Dosage: 150 mg, UNK
     Route: 048
     Dates: start: 200707, end: 200904
  4. PROZAC [Concomitant]
  5. MAXALT [Concomitant]
     Indication: MIGRAINE
     Dosage: UNK
     Dates: start: 200709, end: 200905
  6. INDERAL [Concomitant]
     Dosage: UNK
     Dates: start: 200701, end: 200905
  7. AMIDRINE [Concomitant]
     Dosage: UNK
     Dates: start: 200701, end: 200905
  8. ISOMETHEPTENE/DICHLORALPHENAZONE/APAP [Concomitant]
     Dosage: UNK
     Dates: start: 200701, end: 200905
  9. IMITREX [Concomitant]
     Dosage: UNK
     Dates: start: 200701, end: 200905
  10. BUTASONE [Concomitant]
     Dosage: UNK
     Dates: start: 200701, end: 2009
  11. TREXIMET [Concomitant]
     Dosage: UNK
     Dates: start: 200701, end: 200905
  12. HYDROCODONE W/APAP [Concomitant]
     Indication: DEPRESSION
     Dosage: UNK
     Dates: start: 200701, end: 200905
  13. CITALOPRAM [Concomitant]
     Indication: MIGRAINE
     Dosage: UNK
     Dates: start: 200703, end: 200709
  14. EFFEXOR XR [Concomitant]
     Indication: DEPRESSION
     Dosage: UNK
     Dates: start: 200711, end: 200804
  15. SUMATRIPTAN [Concomitant]

REACTIONS (4)
  - Pulmonary embolism [Unknown]
  - Dyspnoea [Unknown]
  - Pleuritic pain [Unknown]
  - Chest discomfort [Unknown]
